FAERS Safety Report 5889398-5 (Version None)
Quarter: 2008Q3

REPORT INFORMATION
  Report Type: 
  Country: None (occurrence: None)
  Receive Date: 20080919
  Receipt Date: 20080806
  Transmission Date: 20090109
  Serious: No
  Sender: FDA-Public Use
  Company Number: US-BAYER-200830712NA

PATIENT
  Age: 28 Year
  Sex: Female

DRUGS (1)
  1. YAZ [Suspect]
     Indication: MENSTRUATION IRREGULAR
     Route: 048
     Dates: start: 20080701

REACTIONS (2)
  - INSOMNIA [None]
  - NO ADVERSE EVENT [None]
